FAERS Safety Report 7523045-1 (Version None)
Quarter: 2011Q2

REPORT INFORMATION
  Report Type: 
  Country: None (occurrence: None)
  Receive Date: 20110603
  Receipt Date: 20110601
  Transmission Date: 20111010
  Serious: Yes (Life-Threatening)
  Sender: FDA-Public Use
  Company Number: FR-B.I. PHARMACEUTICALS,INC./RIDGEFIELD-2011-FF-00460FF

PATIENT
  Sex: Female
  Weight: 82 kg

DRUGS (8)
  1. PROZAC [Concomitant]
     Route: 048
  2. IMOVANE [Concomitant]
  3. NICORETTE [Concomitant]
  4. FORLAX [Concomitant]
  5. NEXIUM [Concomitant]
     Route: 048
  6. ATORVASTATIN [Concomitant]
     Route: 048
  7. GAVISCON [Concomitant]
  8. PRADAXA [Suspect]
     Indication: ATRIAL FIBRILLATION
     Dosage: 220 MG
     Route: 048
     Dates: start: 20110223, end: 20110412

REACTIONS (2)
  - DRUG INEFFECTIVE [None]
  - ISCHAEMIC STROKE [None]
